FAERS Safety Report 23952182 (Version 1)
Quarter: 2024Q2

REPORT INFORMATION
  Report Type: Spontaneous
  Country: US (occurrence: None)
  Receive Date: 20240607
  Receipt Date: 20240607
  Transmission Date: 20240715
  Serious: Yes (Hospitalization)
  Sender: FDA-Public Use
  Company Number: None

PATIENT
  Age: 63 Year
  Sex: Male
  Weight: 86.64 kg

DRUGS (16)
  1. ACETAMINOPHEN\HYDROCODONE [Suspect]
     Active Substance: ACETAMINOPHEN\HYDROCODONE
     Indication: Urinary retention
     Dosage: OTHER QUANTITY : 1 EVERY 4 HRS?FREQUENCY : EVERY 4 HOURS?
     Route: 048
     Dates: start: 20240507, end: 20240509
  2. ACETAMINOPHEN\HYDROCODONE [Suspect]
     Active Substance: ACETAMINOPHEN\HYDROCODONE
     Indication: Constipation
  3. ATORVASTATIN [Concomitant]
     Active Substance: ATORVASTATIN
  4. LISINOPRIL [Concomitant]
     Active Substance: LISINOPRIL
  5. TAMSULOSIN [Concomitant]
     Active Substance: TAMSULOSIN
  6. VITAMIN C [Concomitant]
     Active Substance: ASCORBIC ACID
  7. COCONUT OIL [Concomitant]
     Active Substance: COCONUT OIL
  8. GLUCOSAMINE + CHONDROITIN [Concomitant]
  9. PROBIOTIC - CULTURELLE [Concomitant]
  10. HONEY BEE PROPOLIS [Concomitant]
  11. MULTIVITAMIN - IRWIN NATURALS [Concomitant]
  12. FISH OIL [Concomitant]
     Active Substance: FISH OIL
  13. TART CHERRY [Concomitant]
  14. FULL SPECTRUM TURMERIC [Concomitant]
  15. HYALURONIC ACID COMPLEX [Concomitant]
  16. VITALAX [Concomitant]

REACTIONS (3)
  - Back pain [None]
  - Constipation [None]
  - Abdominal discomfort [None]

NARRATIVE: CASE EVENT DATE: 20240510
